FAERS Safety Report 24317826 (Version 2)
Quarter: 2024Q4

REPORT INFORMATION
  Report Type: Report from Study
  Country: IL (occurrence: IL)
  Receive Date: 20240913
  Receipt Date: 20241205
  Transmission Date: 20250115
  Serious: Yes (Hospitalization)
  Sender: AMGEN
  Company Number: IL-AMGEN-ISRNI2024176196

PATIENT
  Sex: Male

DRUGS (1)
  1. TEPROTUMUMAB [Suspect]
     Active Substance: TEPROTUMUMAB
     Indication: Endocrine ophthalmopathy
     Dosage: UNK
     Route: 042

REACTIONS (3)
  - Encephalopathy [Recovered/Resolved]
  - Pyrexia [Unknown]
  - Chills [Unknown]
